FAERS Safety Report 7602381-4 (Version None)
Quarter: 2011Q3

REPORT INFORMATION
  Report Type: 
  Country: None (occurrence: None)
  Receive Date: 20110712
  Receipt Date: 20110701
  Transmission Date: 20111222
  Serious: No
  Sender: FDA-Public Use
  Company Number: US-BIOGENIDEC-2011BI023556

PATIENT
  Sex: Male

DRUGS (3)
  1. TYSABRI [Suspect]
     Route: 042
     Dates: start: 20060929, end: 20081003
  2. TYSABRI [Suspect]
     Indication: MULTIPLE SCLEROSIS
     Route: 042
     Dates: start: 20100924
  3. TYSABRI [Suspect]
     Route: 042
     Dates: start: 20090805, end: 20090921

REACTIONS (4)
  - HEMIPARESIS [None]
  - DEPRESSION [None]
  - DRUG INEFFECTIVE [None]
  - ANGER [None]
